FAERS Safety Report 5766630-X (Version None)
Quarter: 2008Q2

REPORT INFORMATION
  Report Type: 
  Country: None (occurrence: None)
  Receive Date: 20080609
  Receipt Date: 20080528
  Transmission Date: 20081010
  Serious: Yes (Hospitalization)
  Sender: FDA-Public Use
  Company Number: 235095J08USA

PATIENT
  Age: 55 Year
  Sex: Female

DRUGS (4)
  1. REBIF [Suspect]
     Indication: MULTIPLE SCLEROSIS
     Dosage: 44 MCG, 3 IN 1 WEEKS, SUBCUTANEOUS
     Route: 058
     Dates: start: 20070817
  2. HUMALOG [Concomitant]
  3. LANTUS [Concomitant]
  4. TYLENOL (COTYLENOL) [Concomitant]

REACTIONS (7)
  - BLOOD GLUCOSE INCREASED [None]
  - BODY TEMPERATURE INCREASED [None]
  - CHILLS [None]
  - HEADACHE [None]
  - OPTIC NEURITIS [None]
  - PAIN IN EXTREMITY [None]
  - SLEEP DISORDER [None]
